FAERS Safety Report 18542233 (Version 2)
Quarter: 2020Q4

REPORT INFORMATION
  Report Type: Spontaneous
  Country: US (occurrence: US)
  Receive Date: 20201124
  Receipt Date: 20201204
  Transmission Date: 20210114
  Serious: Yes (Hospitalization, Other)
  Sender: FDA-Public Use
  Company Number: US-PFIZER INC-2020462181

PATIENT
  Sex: Female

DRUGS (1)
  1. LIOTHYRONINE SODIUM. [Suspect]
     Active Substance: LIOTHYRONINE SODIUM
     Dosage: UNK

REACTIONS (9)
  - Drug ineffective [Unknown]
  - Myocardial infarction [Unknown]
  - Muscle spasms [Unknown]
  - Feeling cold [Unknown]
  - Illness [Unknown]
  - Feeling abnormal [Unknown]
  - Palpitations [Unknown]
  - Alopecia [Unknown]
  - Angina pectoris [Unknown]
